FAERS Safety Report 7776496-4 (Version None)
Quarter: 2011Q3

REPORT INFORMATION
  Report Type: 
  Country: None (occurrence: None)
  Receive Date: 20110922
  Receipt Date: 20110922
  Transmission Date: 20111222
  Serious: Yes (Other)
  Sender: FDA-Public Use
  Company Number: None

PATIENT
  Sex: Female

DRUGS (1)
  1. COPAXONE [Suspect]
     Indication: MULTIPLE SCLEROSIS
     Dosage: 20 MG QD SUBQ
     Route: 058
     Dates: start: 20100211, end: 20110707

REACTIONS (3)
  - LIP SWELLING [None]
  - EYE SWELLING [None]
  - SWELLING FACE [None]
